FAERS Safety Report 5575468-8 (Version None)
Quarter: 2007Q4

REPORT INFORMATION
  Report Type: 
  Country: None (occurrence: None)
  Receive Date: 20071130
  Receipt Date: 20070813
  Transmission Date: 20080405
  Serious: No
  Sender: FDA-Public Use
  Company Number: US200708001120

PATIENT
  Age: 54 Year
  Sex: Male

DRUGS (9)
  1. BYETTA [Suspect]
     Indication: TYPE 2 DIABETES MELLITUS
     Dosage: 5 UG, 2/D, SUBCUTANEOUS
     Route: 058
     Dates: start: 20070722
  2. EXENATIDE 5MCG PEN, DISPOSABLE DEVICE (EXENATIDE PEN (5MCG)) PEN,DISPO [Concomitant]
  3. GLUCOPHAG XR (METFORMIN HYDROCHLORIDE) [Concomitant]
  4. AMARYL [Concomitant]
  5. ACTOS /USA/ (PIOGLITAZONE HYDROCHLORIDE) [Concomitant]
  6. FENOFIBRATE [Concomitant]
  7. ZESTRIL [Concomitant]
  8. ZETIA [Concomitant]
  9. ASPIRIN [Concomitant]

REACTIONS (16)
  - BLOOD GLUCOSE ABNORMAL [None]
  - DECREASED APPETITE [None]
  - DIPLOPIA [None]
  - DISTURBANCE IN ATTENTION [None]
  - DRUG EFFECT DECREASED [None]
  - FATIGUE [None]
  - HYPERSOMNIA [None]
  - HYPERTENSION [None]
  - IMPAIRED HEALING [None]
  - INJECTION SITE BRUISING [None]
  - INJECTION SITE PAIN [None]
  - LIMB DISCOMFORT [None]
  - NAUSEA [None]
  - PARALYSIS [None]
  - SOMNOLENCE [None]
  - VISION BLURRED [None]
